FAERS Safety Report 25901033 (Version 1)
Quarter: 2025Q4

REPORT INFORMATION
  Report Type: Spontaneous
  Country: CA (occurrence: CA)
  Receive Date: 20251009
  Receipt Date: 20251009
  Transmission Date: 20260118
  Serious: Yes (Other)
  Sender: RANBAXY
  Company Number: CA-SUN PHARMACEUTICAL INDUSTRIES LTD-2025R1-530437

PATIENT
  Age: 55 Year
  Sex: Female

DRUGS (1)
  1. BUDESONIDE [Suspect]
     Active Substance: BUDESONIDE
     Indication: Rhinitis allergic
     Dosage: UNK UNK, BID

REACTIONS (6)
  - Arthralgia [Unknown]
  - Chest pain [Unknown]
  - Peripheral swelling [Unknown]
  - Fatigue [Unknown]
  - Nausea [Unknown]
  - Thirst [Unknown]
